FAERS Safety Report 9100822 (Version 1)
Quarter: 2013Q1

REPORT INFORMATION
  Report Type: Spontaneous
  Country: FR (occurrence: FR)
  Receive Date: 20130215
  Receipt Date: 20130215
  Transmission Date: 20140127
  Serious: Yes (Hospitalization, Other)
  Sender: FDA-Public Use
  Company Number: FR-009507513-1302FRA002255

PATIENT
  Age: 69 Year
  Sex: Female

DRUGS (2)
  1. FORTZAAR [Suspect]
     Dosage: 1 DF, QD
     Route: 048
     Dates: start: 20090219, end: 20090325
  2. ZYLORIC [Suspect]
     Dosage: 1 DF, QD
     Route: 048
     Dates: start: 20090219, end: 20090317

REACTIONS (12)
  - Drug reaction with eosinophilia and systemic symptoms [Recovering/Resolving]
  - Renal failure acute [None]
  - Anaemia [None]
  - White blood cell count decreased [None]
  - Thrombocytopenia [None]
  - Epstein-Barr virus infection [None]
  - Herpes simplex meningoencephalitis [None]
  - Myalgia [None]
  - Weight decreased [None]
  - Asthenia [None]
  - Dysgeusia [None]
  - Human herpesvirus 6 infection [None]
